FAERS Safety Report 5238105-8 (Version None)
Quarter: 2007Q1

REPORT INFORMATION
  Report Type: 
  Country: None (occurrence: None)
  Receive Date: 20070215
  Receipt Date: 20070202
  Transmission Date: 20070707
  Serious: Yes (Hospitalization)
  Sender: FDA-Public Use
  Company Number: DE-JNJFOC-20070200411

PATIENT
  Sex: Male
  Weight: 26 kg

DRUGS (2)
  1. CONCERTA [Suspect]
     Indication: ATTENTION DEFICIT/HYPERACTIVITY DISORDER
     Route: 065
  2. DIPIPERON [Concomitant]
     Route: 048

REACTIONS (4)
  - ATTENTION DEFICIT/HYPERACTIVITY DISORDER [None]
  - RESTLESSNESS [None]
  - SLEEP TERROR [None]
  - SOCIAL AVOIDANT BEHAVIOUR [None]
